FAERS Safety Report 5875166-7 (Version None)
Quarter: 2008Q3

REPORT INFORMATION
  Report Type: 
  Country: None (occurrence: None)
  Receive Date: 20080909
  Receipt Date: 20080829
  Transmission Date: 20090109
  Serious: Yes (Life-Threatening, Hospitalization)
  Sender: FDA-Public Use
  Company Number: US-JNJFOC-20080801820

PATIENT
  Sex: Male
  Weight: 99.79 kg

DRUGS (3)
  1. REMICADE [Suspect]
     Route: 042
  2. REMICADE [Suspect]
     Indication: RHEUMATOID ARTHRITIS
     Route: 042
  3. OXYCODONE HCL [Concomitant]

REACTIONS (3)
  - ABDOMINAL ABSCESS [None]
  - COLECTOMY [None]
  - INTERSTITIAL LUNG DISEASE [None]
